FAERS Safety Report 16660860 (Version 1)
Quarter: 2019Q3

REPORT INFORMATION
  Report Type: Spontaneous
  Country: US (occurrence: US)
  Receive Date: 20190802
  Receipt Date: 20190802
  Transmission Date: 20191004
  Serious: No
  Sender: FDA-Public Use
  Company Number: US-FERRINGPH-2019FE00984

PATIENT
  Age: 38 Year
  Sex: Female
  Weight: 88.89 kg

DRUGS (2)
  1. ENDOMETRIN [Suspect]
     Active Substance: PROGESTERONE
     Indication: ASSISTED FERTILISATION
     Dosage: UNK,
     Route: 067
     Dates: start: 20190220, end: 20190223
  2. PRENATAL VITAMINS                  /02014401/ [Concomitant]
     Active Substance: VITAMINS
     Indication: PRODUCT USED FOR UNKNOWN INDICATION
     Dosage: UNK
     Route: 065

REACTIONS (7)
  - Headache [Recovered/Resolved]
  - Urine abnormality [Recovered/Resolved]
  - Dizziness [Recovered/Resolved]
  - Product odour abnormal [Unknown]
  - Bedridden [Recovered/Resolved]
  - Nausea [Recovered/Resolved]
  - Gait disturbance [Recovered/Resolved]

NARRATIVE: CASE EVENT DATE: 20190221
